FAERS Safety Report 19520364 (Version 3)
Quarter: 2024Q3

REPORT INFORMATION
  Report Type: Spontaneous
  Country: US (occurrence: US)
  Receive Date: 20210712
  Receipt Date: 20240903
  Transmission Date: 20241017
  Serious: Yes (Hospitalization)
  Sender: AMNEAL
  Company Number: US-AMNEAL PHARMACEUTICALS-2021-AMRX-02592

PATIENT
  Age: 51 Year
  Sex: Female
  Weight: 94.785 kg

DRUGS (10)
  1. ACTIVELLA [Suspect]
     Active Substance: ESTRADIOL\NORETHINDRONE ACETATE
     Indication: Uterine leiomyoma
     Dosage: 1 DOSAGE FORM, DAILY
     Route: 048
     Dates: start: 20191125, end: 20201027
  2. ACTIVELLA [Suspect]
     Active Substance: ESTRADIOL\NORETHINDRONE ACETATE
     Dosage: 1 DOSAGE FORM, 1 /DAY
     Route: 048
     Dates: start: 20201027, end: 20210224
  3. ELAGOLIX [Suspect]
     Active Substance: ELAGOLIX
     Indication: Uterine leiomyoma
     Dosage: 300 MILLIGRAM, PM DOSE DAILY
     Route: 048
     Dates: start: 20191125, end: 20201027
  4. ELAGOLIX [Suspect]
     Active Substance: ELAGOLIX
     Dosage: 1 DOSAGE FORM, (PM DOSE)
     Route: 048
     Dates: start: 20201027, end: 20210224
  5. FERROUS SULFATE [Concomitant]
     Active Substance: FERROUS SULFATE
     Indication: Anaemia
     Dosage: 325 MILLIGRAM, 1 /DAY
     Route: 048
     Dates: start: 20190506
  6. METOPROLOL [Concomitant]
     Active Substance: METOPROLOL
     Indication: Hypertension
     Dosage: 20 MILLIGRAM, 1 /DAY
     Route: 048
     Dates: start: 20200428
  7. LOSARTAN [Concomitant]
     Active Substance: LOSARTAN\LOSARTAN POTASSIUM
     Indication: Hypertension
     Dosage: 25 MILLIGRAM, 1 /DAY
     Route: 048
     Dates: start: 20200410
  8. IBUPROFEN [Concomitant]
     Active Substance: IBUPROFEN
     Indication: Pelvic pain
     Dosage: 800 MILLIGRAM, AS NEEDED
     Route: 065
     Dates: start: 20190830, end: 20190902
  9. GABAPENTIN [Concomitant]
     Active Substance: GABAPENTIN
     Indication: Pelvic pain
     Dosage: 600 MILLIGRAM, 1 /DAY
     Route: 065
     Dates: start: 20210323
  10. CELECOXIB [Concomitant]
     Active Substance: CELECOXIB
     Indication: Pelvic pain
     Dosage: 400 MILLIGRAM, 1 /DAY
     Route: 065
     Dates: start: 20210323

REACTIONS (1)
  - Pain [Not Recovered/Not Resolved]

NARRATIVE: CASE EVENT DATE: 20210325
